FAERS Safety Report 6361801-6 (Version None)
Quarter: 2009Q3

REPORT INFORMATION
  Report Type: 
  Country: None (occurrence: None)
  Receive Date: 20090918
  Receipt Date: 20090914
  Transmission Date: 20100115
  Serious: Yes (Life-Threatening, Hospitalization, Disabling)
  Sender: FDA-Public Use
  Company Number: US-GENENTECH-278145

PATIENT
  Sex: Male

DRUGS (7)
  1. RANIBIZUMAB [Suspect]
     Indication: MACULAR OEDEMA
     Dosage: UNK
     Route: 031
     Dates: start: 20080909, end: 20090206
  2. ZOCOR [Concomitant]
     Indication: HYPERLIPIDAEMIA
     Dosage: UNK
     Route: 048
  3. LIPID LOWERING AGENT [Concomitant]
     Indication: DRUG USE FOR UNKNOWN INDICATION
  4. CHANTIX [Concomitant]
     Indication: DRUG USE FOR UNKNOWN INDICATION
     Dosage: 1 MG, BID
     Route: 048
     Dates: start: 20080910, end: 20090224
  5. VITAMIN B-12 [Concomitant]
     Indication: PROPHYLAXIS
     Dosage: 500 A?G, QD
     Route: 048
     Dates: end: 20090224
  6. TYLENOL (CAPLET) [Concomitant]
     Indication: HEADACHE
     Dosage: 500 MG, PRN
     Route: 048
     Dates: end: 20090224
  7. GENTEAL LUBRICANT EYE GEL [Concomitant]
     Indication: KERATITIS
     Dosage: UNK
     Route: 061
     Dates: start: 20090107, end: 20090224

REACTIONS (1)
  - CEREBRAL HAEMORRHAGE [None]
